FAERS Safety Report 8337517-3 (Version None)
Quarter: 2012Q2

REPORT INFORMATION
  Report Type: 
  Country: None (occurrence: None)
  Receive Date: 20120504
  Receipt Date: 19910119
  Transmission Date: 20120825
  Serious: Yes (Death)
  Sender: FDA-Public Use
  Company Number: FR-ROCHE-15685

PATIENT
  Age: 61 Year
  Sex: Male

DRUGS (1)
  1. TICLID [Suspect]
     Indication: PRODUCT USED FOR UNKNOWN INDICATION
     Route: 048

REACTIONS (1)
  - BONE MARROW FAILURE [None]
